FAERS Safety Report 19380142 (Version 1)
Quarter: 2021Q2

REPORT INFORMATION
  Report Type: Spontaneous
  Country: US (occurrence: US)
  Receive Date: 20210604
  Receipt Date: 20210604
  Transmission Date: 20210717
  Serious: No
  Sender: FDA-Public Use
  Company Number: None

PATIENT
  Age: 69 Year
  Sex: Male

DRUGS (1)
  1. TACROLIMUS CAP 0.5MG [Suspect]
     Active Substance: TACROLIMUS
     Dosage: ?          OTHER DOSE:4 CAPS QAM AND 3 ;OTHER FREQUENCY:UNKNOWN;?
     Route: 048
     Dates: start: 201912

REACTIONS (1)
  - Sepsis [None]

NARRATIVE: CASE EVENT DATE: 20210604
